FAERS Safety Report 5369968-3 (Version None)
Quarter: 2007Q2

REPORT INFORMATION
  Report Type: 
  Country: None (occurrence: None)
  Receive Date: 20070626
  Receipt Date: 20070619
  Transmission Date: 20071010
  Serious: Yes (Other)
  Sender: FDA-Public Use
  Company Number: PHBS2007JP03321

PATIENT
  Age: 86 Year
  Sex: Female

DRUGS (14)
  1. LAMISIL [Suspect]
     Indication: NAIL TINEA
     Route: 048
     Dates: start: 20061226, end: 20070122
  2. WARFARIN SODIUM [Concomitant]
     Route: 048
  3. OMEPRAL [Concomitant]
     Route: 048
  4. LASIX [Concomitant]
     Route: 048
  5. FLUITRAN [Concomitant]
     Route: 048
  6. ALLOPURINOL [Concomitant]
     Route: 048
  7. ONEALFA [Concomitant]
     Route: 048
  8. MUCOSTA [Concomitant]
     Route: 048
  9. JUVELA [Concomitant]
     Route: 048
  10. MAGNESIUM OXIDE [Concomitant]
     Route: 048
  11. MERISLON [Concomitant]
     Route: 048
  12. RIMATIL [Concomitant]
     Route: 048
  13. LOXONIN [Concomitant]
     Route: 048
  14. MEVALOTIN [Concomitant]
     Route: 048

REACTIONS (8)
  - EOSINOPHIL COUNT INCREASED [None]
  - HAEMATOCRIT DECREASED [None]
  - HAEMATOLOGY TEST ABNORMAL [None]
  - HAEMOGLOBIN DECREASED [None]
  - LYMPHOCYTE COUNT DECREASED [None]
  - MONOCYTE COUNT DECREASED [None]
  - PRURITUS GENERALISED [None]
  - RED BLOOD CELL COUNT DECREASED [None]
